FAERS Safety Report 18602797 (Version 2)
Quarter: 2020Q4

REPORT INFORMATION
  Report Type: Spontaneous
  Country: US (occurrence: US)
  Receive Date: 20201210
  Receipt Date: 20201226
  Transmission Date: 20210114
  Serious: No
  Sender: FDA-Public Use
  Company Number: US-009507513-2012USA000609

PATIENT
  Age: 84 Year
  Sex: Male

DRUGS (1)
  1. DULERA [Suspect]
     Active Substance: FORMOTEROL FUMARATE DIHYDRATE\MOMETASONE FUROATE
     Indication: RESPIRATION ABNORMAL
     Dosage: 2 SPRAYS EVERY MORNING
     Route: 055

REACTIONS (4)
  - Product dose omission issue [Unknown]
  - Dyspnoea [Unknown]
  - Poor quality device used [Unknown]
  - Device malfunction [Unknown]
